FAERS Safety Report 11658634 (Version 1)
Quarter: 2015Q4

REPORT INFORMATION
  Report Type: Report from Study
  Country: US (occurrence: US)
  Receive Date: 20151026
  Receipt Date: 20151026
  Transmission Date: 20160304
  Serious: No
  Sender: FDA-Public Use
  Company Number: PHEH2015US021470

PATIENT
  Sex: Female

DRUGS (1)
  1. AFINITOR [Suspect]
     Active Substance: EVEROLIMUS
     Indication: HEPATIC NEOPLASM
     Route: 065

REACTIONS (5)
  - Abdominal pain upper [Unknown]
  - Hypertension [Unknown]
  - Malaise [Unknown]
  - Liver disorder [Unknown]
  - Nausea [Unknown]
